FAERS Safety Report 9061894 (Version 4)
Quarter: 2013Q2

REPORT INFORMATION
  Report Type: Spontaneous
  Country: US (occurrence: US)
  Receive Date: 20130128
  Receipt Date: 20130515
  Transmission Date: 20140414
  Serious: Yes (Hospitalization, Other)
  Sender: FDA-Public Use
  Company Number: US-MERCK-1210USA011875

PATIENT
  Age: 77 Year
  Sex: Female

DRUGS (5)
  1. FOSAMAX [Suspect]
     Indication: OSTEOPENIA
     Dosage: 70 MG, QW
     Route: 048
     Dates: start: 2006, end: 20120605
  2. ALENDRONATE SODIUM [Suspect]
  3. RYTHMOL [Concomitant]
  4. PAXIL [Concomitant]
  5. AMBIEN [Concomitant]

REACTIONS (3)
  - Femur fracture [Recovering/Resolving]
  - Internal fixation of fracture [Recovering/Resolving]
  - Fall [Recovering/Resolving]
